FAERS Safety Report 6900118-5 (Version None)
Quarter: 2010Q3

REPORT INFORMATION
  Report Type: 
  Country: None (occurrence: None)
  Receive Date: 20100803
  Receipt Date: 20100722
  Transmission Date: 20110219
  Serious: Yes (Other)
  Sender: FDA-Public Use
  Company Number: US-BAYER-201018336BCC

PATIENT
  Age: 70 Year
  Sex: Female
  Weight: 71 kg

DRUGS (6)
  1. ALEVE (CAPLET) [Suspect]
     Indication: MUSCLE STRAIN
     Dosage: UNIT DOSE: 220 MG
     Route: 048
     Dates: start: 20091210, end: 20100101
  2. TRIMEPRAZINE [Concomitant]
  3. POTASSIUM [Concomitant]
  4. MULTI-VITAMINS [Concomitant]
  5. CALTRATE [Concomitant]
  6. LIPITOR [Concomitant]

REACTIONS (9)
  - BLOOD CREATINE INCREASED [None]
  - GLOMERULAR FILTRATION RATE DECREASED [None]
  - NEPHROLITHIASIS [None]
  - POLLAKIURIA [None]
  - RENAL DISORDER [None]
  - RENAL HAEMORRHAGE [None]
  - URINARY RETENTION [None]
  - URINE ABNORMALITY [None]
  - URINE OUTPUT DECREASED [None]
